FAERS Safety Report 4804554-2 (Version None)
Quarter: 2005Q4

REPORT INFORMATION
  Report Type: 
  Country: None (occurrence: None)
  Receive Date: 20051020
  Receipt Date: 20051010
  Transmission Date: 20060501
  Serious: Yes (Death)
  Sender: FDA-Public Use
  Company Number: US-MERCK-0510USA05993

PATIENT
  Age: 46 Year
  Sex: Female

DRUGS (10)
  1. VIOXX [Suspect]
     Indication: PAIN
     Route: 048
     Dates: start: 19990101
  2. INSULIN [Concomitant]
     Route: 058
  3. ZOCOR [Concomitant]
     Route: 065
  4. PREVACID [Concomitant]
     Route: 065
  5. LORATADINE [Concomitant]
     Route: 065
  6. ULTRAM [Concomitant]
     Route: 065
  7. LORAZEPAM [Concomitant]
     Route: 065
  8. DIFLUCAN [Concomitant]
     Route: 065
  9. [THERAPY UNSPECIFIED] [Concomitant]
     Route: 065
  10. [THERAPY UNSPECIFIED] [Concomitant]
     Route: 065

REACTIONS (1)
  - ARRHYTHMIA [None]
